FAERS Safety Report 10545237 (Version 8)
Quarter: 2015Q1

REPORT INFORMATION
  Report Type: Spontaneous
  Country: JP (occurrence: JP)
  Receive Date: 20141027
  Receipt Date: 20150206
  Transmission Date: 20150720
  Serious: Yes (Disabling, Other)
  Sender: FDA-Public Use
  Company Number: JP-PFIZER INC-2014292697

PATIENT
  Age: 77 Year
  Sex: Female
  Weight: 53 kg

DRUGS (9)
  1. MECOBAMIDE [Concomitant]
     Active Substance: METHYLCOBALAMIN
     Dosage: 0.5 MG, UNK
     Dates: end: 20140324
  2. MARGENOL [Concomitant]
     Dosage: 50 MG, UNK
     Dates: end: 20140324
  3. LIPITOR [Suspect]
     Active Substance: ATORVASTATIN CALCIUM
     Indication: HYPERCHOLESTEROLAEMIA
     Dosage: UNK
     Route: 048
     Dates: start: 2010, end: 20131223
  4. ETHYL ICOSAPENTATE [Concomitant]
     Active Substance: ETHYL ICOSAPENTATE
     Dosage: 600 MG, UNK
     Dates: end: 20140324
  5. MYSLEE [Concomitant]
     Active Substance: ZOLPIDEM TARTRATE
     Dosage: 10 MG, UNK
     Dates: end: 20140324
  6. VE-NICOTINATE [Concomitant]
     Dosage: 100 MG, UNK
     Dates: end: 20140324
  7. REMINYL [Concomitant]
     Active Substance: GALANTAMINE
     Dosage: 4 MG, UNK
     Dates: end: 20140324
  8. CRESTOR [Suspect]
     Active Substance: ROSUVASTATIN CALCIUM
     Indication: HYPERCHOLESTEROLAEMIA
     Dosage: 2.5 MG, 1X/DAY
     Route: 048
     Dates: start: 20131224, end: 20140324
  9. EDIROL [Concomitant]
     Active Substance: ELDECALCITOL
     Dosage: 0.75 ?G, UNK
     Dates: end: 20140324

REACTIONS (2)
  - Polymyositis [Unknown]
  - Rhabdomyolysis [Unknown]

NARRATIVE: CASE EVENT DATE: 201312
